FAERS Safety Report 8110682-9 (Version None)
Quarter: 2012Q1

REPORT INFORMATION
  Report Type: 
  Country: None (occurrence: None)
  Receive Date: 20120203
  Receipt Date: 20120130
  Transmission Date: 20120608
  Serious: Yes (Other)
  Sender: FDA-Public Use
  Company Number: US-SP-2011-07514

PATIENT
  Sex: Male

DRUGS (13)
  1. THERACYS [Suspect]
     Dosage: 1/3 DOSE DECREASED TO 1/10 ON 12/JUL/2011
     Route: 043
     Dates: start: 20110607, end: 20110727
  2. ZOCOR [Concomitant]
  3. THERACYS [Suspect]
     Dosage: 1/3
     Route: 043
     Dates: start: 20101229
  4. ASPIRIN [Concomitant]
  5. INTERFERON [Suspect]
     Dates: start: 20110607, end: 20110812
  6. THERACYS [Suspect]
     Dosage: 1/3
     Route: 043
  7. THERACYS [Suspect]
     Dosage: 1/3
     Route: 043
     Dates: start: 20100101
  8. WARFARIN SODIUM [Concomitant]
  9. THERACYS [Suspect]
     Dosage: 1/10
     Route: 043
     Dates: start: 20110805, end: 20110812
  10. TRICOR [Concomitant]
  11. FISH OIL [Concomitant]
  12. GLUCOSAMINE [Concomitant]
  13. THERACYS [Suspect]
     Indication: BLADDER CANCER
     Dosage: 1/3
     Route: 043
     Dates: start: 20100416

REACTIONS (5)
  - HAEMATURIA [None]
  - INCORRECT DOSE ADMINISTERED [None]
  - POLLAKIURIA [None]
  - DYSURIA [None]
  - MICTURITION URGENCY [None]
